FAERS Safety Report 10255925 (Version 1)
Quarter: 2014Q2

REPORT INFORMATION
  Report Type: Spontaneous
  Country: US (occurrence: US)
  Receive Date: 20140624
  Receipt Date: 20140624
  Transmission Date: 20141212
  Serious: Yes (Hospitalization)
  Sender: FDA-Public Use
  Company Number: US-GLAXOSMITHKLINE-A1077706A

PATIENT
  Age: 48 Year
  Sex: Female

DRUGS (5)
  1. VENTOLIN HFA [Suspect]
     Indication: ASTHMA
  2. ADVAIR [Concomitant]
  3. NEXIUM [Concomitant]
  4. PREDNISONE [Concomitant]
  5. ALBUTEROL NEBULIZER TREATMENT [Concomitant]

REACTIONS (4)
  - Pneumonia [Recovered/Resolved]
  - Asthma [Unknown]
  - Inhalation therapy [Not Recovered/Not Resolved]
  - Drug administration error [Unknown]
